FAERS Safety Report 7626205-4 (Version None)
Quarter: 2011Q3

REPORT INFORMATION
  Report Type: 
  Country: None (occurrence: None)
  Receive Date: 20110721
  Receipt Date: 20110707
  Transmission Date: 20111222
  Serious: Yes (Hospitalization, Other)
  Sender: FDA-Public Use
  Company Number: PHHY2011CA52766

PATIENT
  Sex: Female

DRUGS (5)
  1. ZOLEDRONOC ACID [Suspect]
     Indication: OSTEOPOROSIS
     Dosage: 5 MG / YEAR
     Route: 042
     Dates: start: 20110602
  2. CALCIUM CHANNEL BLOCKERS [Concomitant]
  3. CRESTOR [Concomitant]
  4. VITAMIN D [Concomitant]
  5. CALCIUM CARBONATE [Concomitant]

REACTIONS (5)
  - PARALYSIS [None]
  - RENAL FAILURE [None]
  - DYSPNOEA [None]
  - HYPOTENSION [None]
  - RENAL FAILURE ACUTE [None]
